FAERS Safety Report 16938571 (Version 1)
Quarter: 2019Q4

REPORT INFORMATION
  Report Type: Spontaneous
  Country: US (occurrence: US)
  Receive Date: 20191019
  Receipt Date: 20191019
  Transmission Date: 20200122
  Serious: No
  Sender: FDA-Public Use
  Company Number: US-TEVA-2019-US-1122605

PATIENT
  Sex: Female
  Weight: 54.43 kg

DRUGS (1)
  1. PREGABALIN. [Suspect]
     Active Substance: PREGABALIN
     Indication: NEUROPATHY PERIPHERAL
     Dosage: 75 MILLIGRAM DAILY;
     Route: 048

REACTIONS (5)
  - Dizziness [Unknown]
  - Balance disorder [Unknown]
  - Gait disturbance [Unknown]
  - Drug ineffective [Unknown]
  - Product substitution issue [Unknown]
